FAERS Safety Report 5009627-X (Version None)
Quarter: 2006Q2

REPORT INFORMATION
  Report Type: 
  Country: None (occurrence: None)
  Receive Date: 20060524
  Receipt Date: 20060203
  Transmission Date: 20061013
  Serious: Yes (Hospitalization)
  Sender: FDA-Public Use
  Company Number: US-GLAXOSMITHKLINE-A0592311A

PATIENT
  Age: 80 Year
  Sex: Male
  Weight: 79.3 kg

DRUGS (5)
  1. AVANDIA [Suspect]
     Dosage: 4MG TWICE PER DAY
     Route: 048
     Dates: start: 20050505, end: 20051215
  2. METFORMIN [Concomitant]
     Dosage: 1000MG TWICE PER DAY
     Route: 048
  3. GLIPIZIDE [Concomitant]
     Dosage: 5MG THREE TIMES PER DAY
     Route: 048
  4. ALTACE [Concomitant]
     Dosage: 5MG PER DAY
     Route: 048
  5. PREVACID [Concomitant]
     Dosage: 30MG PER DAY
     Route: 048

REACTIONS (11)
  - ARTHRALGIA [None]
  - BACK PAIN [None]
  - DIFFICULTY IN WALKING [None]
  - DRY SKIN [None]
  - ILL-DEFINED DISORDER [None]
  - MUSCULOSKELETAL STIFFNESS [None]
  - OEDEMA PERIPHERAL [None]
  - PAIN [None]
  - PAIN IN EXTREMITY [None]
  - RASH [None]
  - SKIN EXFOLIATION [None]
